FAERS Safety Report 8967497 (Version 1)
Quarter: 2012Q4

REPORT INFORMATION
  Report Type: 
  Country: US (occurrence: US)
  Receive Date: 20121214
  Receipt Date: 20121214
  Transmission Date: 20130627
  Serious: Yes (Other)
  Sender: FDA-Public Use
  Company Number: US-ABBOTT-12P-163-1018657-00

PATIENT

DRUGS (1)
  1. HUMIRA [Suspect]
     Indication: EXPOSURE VIA SEMEN
     Dosage: Unknown
     Route: 050

REACTIONS (3)
  - Complication of delivery [Unknown]
  - Foetal exposure during pregnancy [Unknown]
  - Paternal drugs affecting foetus [Unknown]
